FAERS Safety Report 6529532-7 (Version None)
Quarter: 2010Q1

REPORT INFORMATION
  Report Type: 
  Country: None (occurrence: None)
  Receive Date: 20100107
  Receipt Date: 20091229
  Transmission Date: 20100710
  Serious: Yes (Other)
  Sender: FDA-Public Use
  Company Number: US-JNJFOC-20091207955

PATIENT
  Age: 50 Year
  Sex: Male

DRUGS (2)
  1. TYLENOL (CAPLET) [Suspect]
  2. TYLENOL (CAPLET) [Suspect]
     Indication: ARTHRITIS
     Dosage: POSSIBLY 3 DOSES OVER A 48 HOUR PERIOD

REACTIONS (2)
  - PRODUCT QUALITY ISSUE [None]
  - ULCER HAEMORRHAGE [None]
